FAERS Safety Report 4323018-6 (Version None)
Quarter: 2004Q1

REPORT INFORMATION
  Report Type: 
  Country: None (occurrence: None)
  Receive Date: 20040322
  Receipt Date: 20040308
  Transmission Date: 20041129
  Serious: Yes (Hospitalization)
  Sender: FDA-Public Use
  Company Number: 2003160969US

PATIENT
  Age: 69 Year
  Sex: Female
  Weight: 62.6 kg

DRUGS (28)
  1. ROGAINE [Suspect]
     Indication: FEMALE PATTERN BALDNESS
     Dosage: 1 ML, BID,TOPICAL
     Route: 061
     Dates: start: 20030511, end: 20040308
  2. ATENOLOL [Concomitant]
  3. PLAVIX [Concomitant]
  4. GLYBURIDE [Concomitant]
  5. LOTENSIN [Concomitant]
  6. MEVACOR [Concomitant]
  7. NORVASC [Concomitant]
  8. GLUCOPHAGE [Concomitant]
  9. METFORMIN HCL [Concomitant]
  10. POTASSIUM [Concomitant]
  11. ^OMETRAZOLE^ [Concomitant]
  12. PEPCID [Concomitant]
  13. ZANTAC [Concomitant]
  14. PRINIVIL [Concomitant]
  15. ECOTRIN [Concomitant]
  16. LASIX [Concomitant]
  17. VITAMIN C [Concomitant]
  18. FERROUS SULFATE TAB [Concomitant]
  19. CENTRUM SILVER (RETINOL, VITAMINS NOS, VITAMIN B NOS) [Concomitant]
  20. LIVOSTIN [Concomitant]
  21. MILK OF MAGNESIA TAB [Concomitant]
  22. COLACE (DOCUSATE SODIUM) [Concomitant]
  23. FIBERCON (POLYCARBOPHIL CALCIUM) [Concomitant]
  24. VITAMIN E [Concomitant]
  25. FOLIC ACID [Concomitant]
  26. NORTRIPTYLINE HCL [Concomitant]
  27. PREMARIN [Concomitant]
  28. INDAPAMIDE [Concomitant]

REACTIONS (4)
  - BLOOD PRESSURE INCREASED [None]
  - ERYTHEMA [None]
  - HYPERTRICHOSIS [None]
  - RENAL CELL CARCINOMA STAGE UNSPECIFIED [None]
